FAERS Safety Report 25367672 (Version 1)
Quarter: 2025Q2

REPORT INFORMATION
  Report Type: Spontaneous
  Country: PT (occurrence: PT)
  Receive Date: 20250528
  Receipt Date: 20250528
  Transmission Date: 20250716
  Serious: Yes (Other)
  Sender: AUROBINDO
  Company Number: PT-INFARMED-J202505-27

PATIENT
  Age: 14 Year
  Sex: Female

DRUGS (2)
  1. KETOROLAC TROMETHAMINE [Suspect]
     Active Substance: KETOROLAC TROMETHAMINE
     Indication: Migraine
     Route: 042
     Dates: start: 20250428
  2. ONDANSETRON [Suspect]
     Active Substance: ONDANSETRON
     Indication: Vomiting
     Route: 042
     Dates: start: 20250428

REACTIONS (8)
  - Nausea [Recovered/Resolved]
  - Laryngeal oedema [Recovered/Resolved]
  - Rash [Recovered/Resolved]
  - Pruritus [Recovered/Resolved]
  - Paraesthesia [Recovered/Resolved]
  - Speech disorder [Recovered/Resolved]
  - Tongue oedema [Recovered/Resolved]
  - Anaphylactic reaction [Recovered/Resolved]

NARRATIVE: CASE EVENT DATE: 20250428
